FAERS Safety Report 10003688 (Version 2)
Quarter: 2014Q1

REPORT INFORMATION
  Report Type: Spontaneous
  Country: US (occurrence: US)
  Receive Date: 20140312
  Receipt Date: 20140312
  Transmission Date: 20141002
  Serious: No
  Sender: FDA-Public Use
  Company Number: US-GILEAD-2012-0059968

PATIENT
  Sex: Female

DRUGS (1)
  1. LETAIRIS [Suspect]
     Indication: PULMONARY HYPERTENSION
     Dosage: 10 MG, UNK
     Route: 048
     Dates: start: 20100324

REACTIONS (5)
  - Insomnia [Unknown]
  - Feeling abnormal [Unknown]
  - Unevaluable event [Unknown]
  - Somnolence [Unknown]
  - Dizziness [Unknown]
